FAERS Safety Report 17655945 (Version 2)
Quarter: 2020Q2

REPORT INFORMATION
  Report Type: Spontaneous
  Country: PL (occurrence: PL)
  Receive Date: 20200410
  Receipt Date: 20200421
  Transmission Date: 20200713
  Serious: Yes (Other)
  Sender: FDA-Public Use
  Company Number: PL-BAUSCH-BL-2020-009847

PATIENT
  Age: 61 Year
  Sex: Male

DRUGS (7)
  1. FENTANYL. [Suspect]
     Active Substance: FENTANYL
     Indication: PAIN
     Dosage: 200 UG/HR
     Route: 065
  2. TRAMADOL. [Suspect]
     Active Substance: TRAMADOL
     Indication: PAIN
     Dosage: 37.5 MG, ADHOC UPTO 4 TIMES DAILY
     Route: 065
  3. LEUPRORELIN [Suspect]
     Active Substance: LEUPROLIDE ACETATE
     Dosage: EVERY SIX MONTHS
     Route: 065
  4. ACETAMINOFEN [Suspect]
     Active Substance: ACETAMINOPHEN
     Indication: PAIN
     Dosage: 375 MG, ADHOC UPTO 4 TIMES DAILY
     Route: 065
  5. DOCETAXEL. [Suspect]
     Active Substance: DOCETAXEL
     Indication: PRODUCT USED FOR UNKNOWN INDICATION
     Route: 065
  6. DICLOFENAC [Suspect]
     Active Substance: DICLOFENAC
     Indication: PAIN
     Route: 065
  7. LEUPRORELIN [Suspect]
     Active Substance: LEUPROLIDE ACETATE
     Indication: PROSTATE CANCER
     Route: 065

REACTIONS (5)
  - Malignant neoplasm progression [Unknown]
  - Prostate cancer [Unknown]
  - Chronic kidney disease [Unknown]
  - Polyneuropathy [Unknown]
  - Metastases to lung [Unknown]
